FAERS Safety Report 10534727 (Version 2)
Quarter: 2014Q4

REPORT INFORMATION
  Report Type: Report from Study
  Country: US (occurrence: US)
  Receive Date: 20141022
  Receipt Date: 20141022
  Transmission Date: 20150529
  Serious: Yes (Hospitalization, Other)
  Sender: FDA-Public Use
  Company Number: US-ABBVIE-14K-163-1216518-00

PATIENT
  Age: 71 Year
  Sex: Female
  Weight: 62.2 kg

DRUGS (9)
  1. HUMIRA [Suspect]
     Active Substance: ADALIMUMAB
     Route: 058
     Dates: start: 20140606, end: 20140606
  2. COSOPT [Concomitant]
     Active Substance: DORZOLAMIDE HYDROCHLORIDE\TIMOLOL MALEATE
     Indication: GLAUCOMA
     Dosage: ONE DROP EACH EYE,EYE GTTS
  3. HUMIRA [Suspect]
     Active Substance: ADALIMUMAB
     Indication: COLITIS ULCERATIVE
     Route: 065
     Dates: start: 20140314, end: 20140314
  4. HUMIRA [Suspect]
     Active Substance: ADALIMUMAB
     Route: 058
     Dates: start: 20140620, end: 20140620
  5. WARFARIN [Concomitant]
     Active Substance: WARFARIN
     Indication: PULMONARY THROMBOSIS
     Dosage: 5 MG DAILY ONE AND A HALF ON MONDAY WEDNESDAYAND FRIDAY AND ONE THE OTHER DAYS OF WEEK
  6. ASACOL [Concomitant]
     Active Substance: MESALAMINE
     Indication: COLITIS ULCERATIVE
  7. HUMIRA [Suspect]
     Active Substance: ADALIMUMAB
     Dosage: HUMIRA WAS STOPPED AFTER THIS DOSE
     Route: 065
     Dates: start: 20140704, end: 20140704
  8. SIMPONI [Suspect]
     Active Substance: GOLIMUMAB
     Indication: PRODUCT USED FOR UNKNOWN INDICATION
     Route: 065
  9. LOSARTAN [Concomitant]
     Active Substance: LOSARTAN
     Indication: BLOOD PRESSURE INCREASED
     Dosage: 50 MG 1/2 TABLET

REACTIONS (8)
  - Weight gain poor [Unknown]
  - Hypophagia [Unknown]
  - Malnutrition [Recovering/Resolving]
  - Flatulence [Unknown]
  - Dehydration [Recovering/Resolving]
  - Drug ineffective [Unknown]
  - Drug ineffective [Recovering/Resolving]
  - Colitis ulcerative [Recovering/Resolving]

NARRATIVE: CASE EVENT DATE: 2014
